FAERS Safety Report 9286004 (Version 1)
Quarter: 2013Q2

REPORT INFORMATION
  Report Type: Spontaneous
  Country: CH (occurrence: CH)
  Receive Date: 20130513
  Receipt Date: 20130513
  Transmission Date: 20140414
  Serious: Yes (Death)
  Sender: FDA-Public Use
  Company Number: CH-ASTRAZENECA-2013SE32263

PATIENT
  Age: 40 Year
  Sex: Male

DRUGS (9)
  1. SEROQUEL [Suspect]
     Route: 048
  2. CIPRALEX [Suspect]
     Route: 048
  3. RITALINE [Concomitant]
     Route: 048
  4. ZYPREXA [Concomitant]
     Route: 048
  5. TEMESTA [Concomitant]
  6. NICOTINELL [Concomitant]
     Dosage: 14 MG, 1 PER 24 HOURS
  7. IRFEN [Concomitant]
     Dates: start: 20121027
  8. PRAZINE [Concomitant]
     Dates: start: 201212
  9. DAFALGAN [Concomitant]

REACTIONS (1)
  - Death [Fatal]
